FAERS Safety Report 6583373-3 (Version None)
Quarter: 2010Q1

REPORT INFORMATION
  Report Type: 
  Country: None (occurrence: None)
  Receive Date: 20100216
  Receipt Date: 20100205
  Transmission Date: 20100710
  Serious: Yes (Life-Threatening)
  Sender: FDA-Public Use
  Company Number: GXKR2010NL01081

PATIENT
  Age: 28 Year
  Sex: Male

DRUGS (3)
  1. CLOZAPINE [Suspect]
     Indication: SCHIZOPHRENIA, PARANOID TYPE
     Dosage: UP TO 500 MG/DAY
     Route: 065
  2. LORAZEPAM [Concomitant]
     Dosage: 2.5 MG, QD
     Route: 065
  3. DEXETIMIDE [Concomitant]
     Dosage: 0.5 MG, QD
     Route: 065

REACTIONS (24)
  - ABDOMINAL DISTENSION [None]
  - ABDOMINAL PAIN [None]
  - ABDOMINAL RIGIDITY [None]
  - COLITIS ISCHAEMIC [None]
  - COLONIC PSEUDO-OBSTRUCTION [None]
  - CONSTIPATION [None]
  - ENDOTRACHEAL INTUBATION [None]
  - FAECES HARD [None]
  - GASTROINTESTINAL HAEMORRHAGE [None]
  - GASTROINTESTINAL HYPOMOTILITY [None]
  - GASTROINTESTINAL NECROSIS [None]
  - GASTROINTESTINAL TUBE INSERTION [None]
  - INFLAMMATION [None]
  - MECHANICAL VENTILATION [None]
  - MUCOSAL DRYNESS [None]
  - MUCOUS MEMBRANE DISORDER [None]
  - MULTI-ORGAN FAILURE [None]
  - NAUSEA [None]
  - PAIN [None]
  - PARENTERAL NUTRITION [None]
  - RENAL IMPAIRMENT [None]
  - SEPTIC SHOCK [None]
  - SKIN TURGOR DECREASED [None]
  - VOMITING [None]
